FAERS Safety Report 24153509 (Version 1)
Quarter: 2024Q3

REPORT INFORMATION
  Report Type: Spontaneous
  Country: CN (occurrence: CN)
  Receive Date: 20240730
  Receipt Date: 20240730
  Transmission Date: 20241016
  Serious: Yes (Other)
  Sender: BAUSCH AND LOMB
  Company Number: CN-MLMSERVICE-20240715-PI131869-00117-1

PATIENT
  Age: 64 Year
  Sex: Male
  Weight: 70 kg

DRUGS (64)
  1. DEXAMETHASONE [Interacting]
     Active Substance: DEXAMETHASONE
     Indication: Non-Hodgkin^s lymphoma
     Route: 042
     Dates: start: 20220602, end: 20220603
  2. DEXAMETHASONE [Interacting]
     Active Substance: DEXAMETHASONE
     Indication: Haemophagocytic lymphohistiocytosis
     Route: 042
     Dates: start: 20220608, end: 20220611
  3. DEXAMETHASONE [Interacting]
     Active Substance: DEXAMETHASONE
     Route: 042
     Dates: start: 20220721, end: 20220731
  4. DEXAMETHASONE [Interacting]
     Active Substance: DEXAMETHASONE
     Route: 042
     Dates: start: 20220604, end: 20220607
  5. DEXAMETHASONE [Interacting]
     Active Substance: DEXAMETHASONE
     Route: 042
     Dates: start: 20220701, end: 20220704
  6. DEXAMETHASONE [Interacting]
     Active Substance: DEXAMETHASONE
     Route: 042
     Dates: start: 20220526, end: 20220601
  7. DEXAMETHASONE [Interacting]
     Active Substance: DEXAMETHASONE
     Route: 042
     Dates: start: 20220801, end: 20220804
  8. VORICONAZOLE [Interacting]
     Active Substance: VORICONAZOLE
     Indication: Aspergillus infection
     Route: 042
     Dates: start: 20220705, end: 20220711
  9. VORICONAZOLE [Interacting]
     Active Substance: VORICONAZOLE
     Route: 042
     Dates: start: 20220801, end: 20220804
  10. VORICONAZOLE [Interacting]
     Active Substance: VORICONAZOLE
     Route: 042
     Dates: start: 20220712, end: 20220731
  11. VORICONAZOLE [Interacting]
     Active Substance: VORICONAZOLE
     Dosage: 2 DOSES
     Route: 042
     Dates: start: 20220607, end: 20220607
  12. VORICONAZOLE [Interacting]
     Active Substance: VORICONAZOLE
     Route: 042
     Dates: start: 20220608, end: 20220616
  13. VORICONAZOLE [Interacting]
     Active Substance: VORICONAZOLE
     Route: 042
     Dates: start: 20220617, end: 20220705
  14. METHYLPREDNISOLONE [Interacting]
     Active Substance: METHYLPREDNISOLONE
     Indication: Haemophagocytic lymphohistiocytosis
     Route: 042
     Dates: start: 20220723, end: 20220727
  15. METHYLPREDNISOLONE [Interacting]
     Active Substance: METHYLPREDNISOLONE
     Indication: Non-Hodgkin^s lymphoma
     Route: 042
     Dates: start: 20220705, end: 20220720
  16. METHYLPREDNISOLONE [Interacting]
     Active Substance: METHYLPREDNISOLONE
     Route: 042
     Dates: start: 20220630, end: 20220630
  17. METHYLPREDNISOLONE [Interacting]
     Active Substance: METHYLPREDNISOLONE
     Route: 042
     Dates: start: 20220612, end: 20220617
  18. METHYLPREDNISOLONE [Interacting]
     Active Substance: METHYLPREDNISOLONE
     Route: 042
     Dates: start: 20220618, end: 20220619
  19. METHYLPREDNISOLONE [Interacting]
     Active Substance: METHYLPREDNISOLONE
     Route: 042
     Dates: start: 20220620, end: 20220622
  20. METHYLPREDNISOLONE [Interacting]
     Active Substance: METHYLPREDNISOLONE
     Route: 042
     Dates: start: 20220623, end: 20220627
  21. METHYLPREDNISOLONE [Interacting]
     Active Substance: METHYLPREDNISOLONE
     Route: 042
     Dates: start: 20220628, end: 20220629
  22. CASPOFUNGIN [Concomitant]
     Active Substance: CASPOFUNGIN
     Indication: Anti-infective therapy
     Route: 042
     Dates: start: 20220629, end: 20220629
  23. CASPOFUNGIN [Concomitant]
     Active Substance: CASPOFUNGIN
     Route: 042
     Dates: start: 20220607, end: 20220609
  24. CASPOFUNGIN [Concomitant]
     Active Substance: CASPOFUNGIN
     Route: 042
     Dates: start: 20220630, end: 20220724
  25. FOSFOMYCIN [Concomitant]
     Active Substance: FOSFOMYCIN
     Indication: Evidence based treatment
     Route: 042
     Dates: start: 20220601, end: 20220605
  26. FOSFOMYCIN [Concomitant]
     Active Substance: FOSFOMYCIN
     Indication: Antibiotic therapy
  27. AVIBACTAM SODIUM\CEFTAZIDIME [Concomitant]
     Active Substance: AVIBACTAM SODIUM\CEFTAZIDIME
     Indication: Antibiotic therapy
     Route: 042
     Dates: start: 20220612, end: 20220625
  28. AVIBACTAM SODIUM\CEFTAZIDIME [Concomitant]
     Active Substance: AVIBACTAM SODIUM\CEFTAZIDIME
     Indication: Evidence based treatment
     Route: 042
     Dates: start: 20220716
  29. POLYMYXIN B [Concomitant]
     Active Substance: POLYMYXIN B
     Indication: Antibiotic therapy
     Dosage: 1MU Q12 H
     Route: 042
     Dates: start: 20220604, end: 20220606
  30. POLYMYXIN B [Concomitant]
     Active Substance: POLYMYXIN B
     Indication: Evidence based treatment
     Dosage: 0.25 MU Q12 H
     Route: 055
     Dates: start: 20220601
  31. POLYMYXIN B [Concomitant]
     Active Substance: POLYMYXIN B
     Dosage: 1.5 MU Q12 H
     Route: 042
     Dates: start: 20220601, end: 20220603
  32. POLYMYXIN B [Concomitant]
     Active Substance: POLYMYXIN B
     Dosage: 0.5 MU Q12 H (ADJUSTED)
     Route: 042
     Dates: start: 20220607
  33. VANCOMYCIN [Concomitant]
     Active Substance: VANCOMYCIN
     Indication: Antibiotic therapy
     Route: 042
     Dates: start: 20220607, end: 20220625
  34. VANCOMYCIN [Concomitant]
     Active Substance: VANCOMYCIN
     Indication: Evidence based treatment
  35. AMIKACIN [Concomitant]
     Active Substance: AMIKACIN
     Indication: Evidence based treatment
     Route: 055
     Dates: start: 20220711, end: 20220717
  36. AMIKACIN [Concomitant]
     Active Substance: AMIKACIN
     Indication: Antibiotic therapy
  37. AMIKACIN [Concomitant]
     Active Substance: AMIKACIN
     Indication: Evidence based treatment
  38. FLUCONAZOLE [Concomitant]
     Active Substance: FLUCONAZOLE
     Indication: Anti-infective therapy
     Route: 042
     Dates: start: 20220601, end: 20220601
  39. FLUCONAZOLE [Concomitant]
     Active Substance: FLUCONAZOLE
     Route: 042
     Dates: start: 20220602, end: 20220604
  40. ETOPOSIDE [Concomitant]
     Active Substance: ETOPOSIDE
     Indication: Non-Hodgkin^s lymphoma
     Route: 042
     Dates: start: 20220526, end: 20220601
  41. ETOPOSIDE [Concomitant]
     Active Substance: ETOPOSIDE
     Indication: Haemophagocytic lymphohistiocytosis
  42. GANCICLOVIR [Concomitant]
     Active Substance: GANCICLOVIR
     Indication: Anti-infective therapy
     Dosage: 0.125 G QD
     Route: 042
     Dates: start: 20220608
  43. PIPERACILLIN AND TAZOBACTAM [Concomitant]
     Active Substance: PIPERACILLIN SODIUM\TAZOBACTAM SODIUM
     Indication: Antibiotic therapy
     Route: 042
     Dates: start: 20220628, end: 20220714
  44. PIPERACILLIN AND TAZOBACTAM [Concomitant]
     Active Substance: PIPERACILLIN SODIUM\TAZOBACTAM SODIUM
     Indication: Evidence based treatment
     Route: 042
     Dates: start: 20220526, end: 20220601
  45. PIPERACILLIN AND TAZOBACTAM [Concomitant]
     Active Substance: PIPERACILLIN SODIUM\TAZOBACTAM SODIUM
     Route: 042
     Dates: start: 20220714
  46. ZANUBRUTINIB [Concomitant]
     Active Substance: ZANUBRUTINIB
     Indication: Non-Hodgkin^s lymphoma
     Route: 048
     Dates: start: 20220613
  47. ZANUBRUTINIB [Concomitant]
     Active Substance: ZANUBRUTINIB
     Indication: Haemophagocytic lymphohistiocytosis
  48. OBINUTUZUMAB [Concomitant]
     Active Substance: OBINUTUZUMAB
     Indication: Non-Hodgkin^s lymphoma
     Route: 042
     Dates: start: 20220616, end: 20220616
  49. OBINUTUZUMAB [Concomitant]
     Active Substance: OBINUTUZUMAB
     Indication: Haemophagocytic lymphohistiocytosis
     Route: 042
     Dates: start: 20220630, end: 20220630
  50. HUMAN IMMUNOGLOBULIN G [Concomitant]
     Active Substance: HUMAN IMMUNOGLOBULIN G
     Indication: Non-Hodgkin^s lymphoma
     Route: 042
     Dates: start: 20220604, end: 20220615
  51. HUMAN IMMUNOGLOBULIN G [Concomitant]
     Active Substance: HUMAN IMMUNOGLOBULIN G
     Indication: Haemophagocytic lymphohistiocytosis
     Route: 042
     Dates: start: 20220616, end: 20220621
  52. HUMAN IMMUNOGLOBULIN G [Concomitant]
     Active Substance: HUMAN IMMUNOGLOBULIN G
     Route: 042
     Dates: start: 20220622
  53. HUMAN IMMUNOGLOBULIN G [Concomitant]
     Active Substance: HUMAN IMMUNOGLOBULIN G
     Route: 042
     Dates: start: 20220701, end: 20220704
  54. HUMAN IMMUNOGLOBULIN G [Concomitant]
     Active Substance: HUMAN IMMUNOGLOBULIN G
     Route: 042
     Dates: start: 20220705, end: 20220712
  55. HUMAN IMMUNOGLOBULIN G [Concomitant]
     Active Substance: HUMAN IMMUNOGLOBULIN G
     Route: 042
     Dates: start: 20220713, end: 20220726
  56. HUMAN IMMUNOGLOBULIN G [Concomitant]
     Active Substance: HUMAN IMMUNOGLOBULIN G
     Route: 042
     Dates: start: 20220630
  57. VINCRISTINE [Concomitant]
     Active Substance: VINCRISTINE
     Indication: Non-Hodgkin^s lymphoma
     Route: 042
     Dates: start: 20220701, end: 20220704
  58. VINCRISTINE [Concomitant]
     Active Substance: VINCRISTINE
     Indication: Haemophagocytic lymphohistiocytosis
     Route: 042
     Dates: start: 20220801, end: 20220804
  59. DOXORUBICIN [Concomitant]
     Active Substance: DOXORUBICIN
     Indication: Non-Hodgkin^s lymphoma
     Route: 042
     Dates: start: 20220701, end: 20220704
  60. DOXORUBICIN [Concomitant]
     Active Substance: DOXORUBICIN
     Indication: Haemophagocytic lymphohistiocytosis
  61. MINOCYCLINE [Concomitant]
     Active Substance: MINOCYCLINE HYDROCHLORIDE
     Indication: Evidence based treatment
     Route: 048
     Dates: start: 20220602, end: 20220702
  62. MINOCYCLINE [Concomitant]
     Active Substance: MINOCYCLINE HYDROCHLORIDE
     Indication: Antibiotic therapy
  63. AMPHOTERICIN B [Concomitant]
     Active Substance: AMPHOTERICIN B
     Indication: Aspergillus infection
     Route: 042
     Dates: start: 20220721
  64. AMPHOTERICIN B [Concomitant]
     Active Substance: AMPHOTERICIN B
     Indication: Aspergillus infection
     Route: 055
     Dates: start: 20220705, end: 20220815

REACTIONS (4)
  - Drug interaction [Recovered/Resolved]
  - Drug clearance increased [Recovered/Resolved]
  - Drug level decreased [Recovered/Resolved]
  - Treatment failure [Unknown]

NARRATIVE: CASE EVENT DATE: 20220601
